FAERS Safety Report 8324393-8 (Version None)
Quarter: 2012Q1

REPORT INFORMATION
  Report Type: 
  Country: None (occurrence: None)
  Receive Date: 20120315
  Receipt Date: 20110606
  Transmission Date: 20120608
  Serious: No
  Sender: FDA-Public Use
  Company Number: PHHY2011US43692

PATIENT
  Age: 45 Year
  Sex: Female

DRUGS (1)
  1. GLIENYA (FTY) CAPSULE [Suspect]
     Indication: MULTIPLE SCLEROSIS
     Dosage: 0.5 MG, QD
     Dates: start: 20110516

REACTIONS (1)
  - HYPOAESTHESIA ORAL [None]
